FAERS Safety Report 13653132 (Version 1)
Quarter: 2017Q2

REPORT INFORMATION
  Report Type: Spontaneous
  Country: US (occurrence: US)
  Receive Date: 20170614
  Receipt Date: 20170614
  Transmission Date: 20170830
  Serious: Yes (Hospitalization)
  Sender: FDA-Public Use
  Company Number: US-ROCHE-1358535

PATIENT
  Sex: Female

DRUGS (8)
  1. TYLENOL [Concomitant]
     Active Substance: ACETAMINOPHEN
  2. CLARITIN-D NOS [Concomitant]
     Active Substance: LORATADINE\PSEUDOEPHEDRINE SULFATE
  3. MELOXICAM. [Concomitant]
     Active Substance: MELOXICAM
  4. ALBUTEROL INHALER [Concomitant]
     Active Substance: ALBUTEROL
  5. MORPHINE [Concomitant]
     Active Substance: MORPHINE
  6. XELODA [Suspect]
     Active Substance: CAPECITABINE
     Indication: BREAST CANCER
     Dosage: BID 14 DAYS ON 7 DAYS OFF
     Route: 048
     Dates: start: 20140214, end: 20140407
  7. LISINOPRIL. [Concomitant]
     Active Substance: LISINOPRIL
  8. TRAZODONE [Concomitant]
     Active Substance: TRAZODONE HYDROCHLORIDE

REACTIONS (3)
  - Fatigue [Not Recovered/Not Resolved]
  - Infection [Unknown]
  - Diarrhoea [Unknown]
